FAERS Safety Report 7505246-1 (Version None)
Quarter: 2011Q2

REPORT INFORMATION
  Report Type: 
  Country: None (occurrence: None)
  Receive Date: 20110526
  Receipt Date: 20110519
  Transmission Date: 20111010
  Serious: No
  Sender: FDA-Public Use
  Company Number: US-PFIZER INC-2011109939

PATIENT
  Sex: Male

DRUGS (3)
  1. SUTENT [Suspect]
     Indication: RENAL CELL CARCINOMA
     Dosage: 50 MG, 1X/DAY
     Route: 048
     Dates: start: 20110429, end: 20110517
  2. OXYCODONE [Concomitant]
     Indication: PAIN
     Dosage: UNK
  3. ONDANSETRON [Concomitant]
     Indication: NAUSEA
     Dosage: UNK

REACTIONS (2)
  - NAUSEA [None]
  - ABDOMINAL PAIN [None]
